FAERS Safety Report 16301557 (Version 1)
Quarter: 2019Q2

REPORT INFORMATION
  Report Type: Spontaneous
  Country: GB (occurrence: GB)
  Receive Date: 20190511
  Receipt Date: 20190511
  Transmission Date: 20190711
  Serious: Yes (Hospitalization)
  Sender: FDA-Public Use
  Company Number: GB-ROCHE-2315469

PATIENT
  Age: 71 Year
  Sex: Male

DRUGS (1)
  1. ESBRIET [Suspect]
     Active Substance: PIRFENIDONE
     Indication: IDIOPATHIC PULMONARY FIBROSIS
     Route: 048

REACTIONS (2)
  - Idiopathic pulmonary fibrosis [Recovering/Resolving]
  - Infection [Unknown]

NARRATIVE: CASE EVENT DATE: 201812
